FAERS Safety Report 5219476-5 (Version None)
Quarter: 2007Q1

REPORT INFORMATION
  Report Type: 
  Country: None (occurrence: None)
  Receive Date: 20070124
  Receipt Date: 20070124
  Transmission Date: 20070707
  Serious: Yes (Other)
  Sender: FDA-Public Use
  Company Number: None

PATIENT
  Age: 61 Year
  Sex: Male
  Weight: 77.1 kg

DRUGS (8)
  1. ROSUVASTATIN [Suspect]
  2. FENOFIBRATE [Concomitant]
  3. METOPROLOL TARTRATE [Concomitant]
  4. RAMIPRIL [Concomitant]
  5. ISOSORBIDE MONONITRATE [Concomitant]
  6. CLOPIDOGREL BISULFATE [Concomitant]
  7. EPI-PEN INJECTOR [Concomitant]
  8. NITROGLYCERIN [Concomitant]

REACTIONS (1)
  - MYALGIA [None]
